FAERS Safety Report 6255044-4 (Version None)
Quarter: 2009Q3

REPORT INFORMATION
  Report Type: 
  Country: None (occurrence: None)
  Receive Date: 20090702
  Receipt Date: 20090623
  Transmission Date: 20100115
  Serious: Yes (Hospitalization)
  Sender: FDA-Public Use
  Company Number: ES-PFIZER INC-2009215596

PATIENT
  Age: 77 Year

DRUGS (6)
  1. ALDACTONE [Suspect]
     Dosage: 100 MG, 1X/DAY
     Route: 048
     Dates: end: 20080525
  2. ALDOCUMAR [Interacting]
     Indication: AORTIC VALVE DISEASE
     Dosage: UNK
     Route: 048
     Dates: start: 20010901, end: 20080525
  3. DIGOXIN [Concomitant]
     Indication: CARDIAC FAILURE CONGESTIVE
     Dosage: UNK
     Route: 048
     Dates: start: 20080328, end: 20080525
  4. OMEPRAZOLE [Concomitant]
     Dosage: 20 MG, 1X/DAY
     Route: 048
     Dates: end: 20080525
  5. ENALAPRIL [Concomitant]
     Dosage: 10 MG, 1X/DAY
     Route: 048
     Dates: end: 20080525
  6. SEGURIL [Concomitant]
     Dosage: 40 MG, 2X/DAY
     Route: 048
     Dates: end: 20080525

REACTIONS (2)
  - DRUG INTERACTION [None]
  - HAEMATURIA [None]
